FAERS Safety Report 4317003-8 (Version None)
Quarter: 2004Q1

REPORT INFORMATION
  Report Type: 
  Country: None (occurrence: None)
  Receive Date: 20040315
  Receipt Date: 20040227
  Transmission Date: 20041129
  Serious: Yes (Death)
  Sender: FDA-Public Use
  Company Number: 2004US-00291

PATIENT
  Sex: Female

DRUGS (2)
  1. ISOTRETINOIN [Suspect]
     Indication: BRAIN NEOPLASM
     Dosage: 21 DAYS ON AND 1 WEEK OFF, ORAL
     Route: 048
     Dates: start: 20031208, end: 20040213
  2. TEMOZOLOMIDE [Concomitant]

REACTIONS (1)
  - FALL [None]
